FAERS Safety Report 9494202 (Version 1)
Quarter: 2013Q3

REPORT INFORMATION
  Report Type: Spontaneous
  Country: US (occurrence: US)
  Receive Date: 20130903
  Receipt Date: 20130903
  Transmission Date: 20140515
  Serious: Yes (Other)
  Sender: FDA-Public Use
  Company Number: US-ASTRAZENECA-2013SE65853

PATIENT
  Age: 52 Year
  Sex: Male
  Weight: 77.1 kg

DRUGS (5)
  1. NEXIUM [Suspect]
     Indication: GASTROOESOPHAGEAL REFLUX DISEASE
     Route: 048
     Dates: start: 2002, end: 2011
  2. OMEPRAZOLE [Suspect]
     Indication: GASTROOESOPHAGEAL REFLUX DISEASE
     Route: 048
     Dates: start: 2011, end: 2011
  3. ACIPHEX [Concomitant]
     Indication: GASTROOESOPHAGEAL REFLUX DISEASE
     Dosage: DAILY
     Route: 048
     Dates: start: 2011
  4. PROTONIX [Concomitant]
     Indication: GASTROOESOPHAGEAL REFLUX DISEASE
     Route: 048
     Dates: start: 20130807
  5. RANITIDINE [Concomitant]
     Indication: GASTROOESOPHAGEAL REFLUX DISEASE
     Route: 048
     Dates: start: 20130807

REACTIONS (10)
  - Oesophageal carcinoma [Not Recovered/Not Resolved]
  - Barrett^s oesophagus [Unknown]
  - Dyspnoea [Unknown]
  - Gastrooesophageal reflux disease [Not Recovered/Not Resolved]
  - Discomfort [Not Recovered/Not Resolved]
  - Ulcer [Not Recovered/Not Resolved]
  - Gastric mucosa erythema [Not Recovered/Not Resolved]
  - Dizziness [Unknown]
  - Drug ineffective [Not Recovered/Not Resolved]
  - Drug dose omission [Not Recovered/Not Resolved]
